FAERS Safety Report 17770290 (Version 1)
Quarter: 2020Q2

REPORT INFORMATION
  Report Type: Spontaneous
  Country: CA (occurrence: CA)
  Receive Date: 20200512
  Receipt Date: 20200512
  Transmission Date: 20200714
  Serious: Yes (Death)
  Sender: FDA-Public Use
  Company Number: CA-TEVA-2020-CA-1233464

PATIENT
  Age: 76 Year
  Sex: Male
  Weight: 50 kg

DRUGS (11)
  1. BL 1744+ TIOTROPIUM BROMIDE [Concomitant]
  2. CARBOPLATIN. [Suspect]
     Active Substance: CARBOPLATIN
     Indication: SMALL CELL LUNG CANCER
     Route: 042
  3. LOSARTAN/HCTZ [Concomitant]
     Active Substance: HYDROCHLOROTHIAZIDE\LOSARTAN
  4. TECENTRIQ [Suspect]
     Active Substance: ATEZOLIZUMAB
     Indication: SMALL CELL LUNG CANCER
     Route: 042
  5. ACETAMINOPHEN. [Concomitant]
     Active Substance: ACETAMINOPHEN
  6. NIFEDIPINE. [Concomitant]
     Active Substance: NIFEDIPINE
  7. ASPIRIN. [Concomitant]
     Active Substance: ASPIRIN
  8. VITAMIN D3 [Concomitant]
     Active Substance: CHOLECALCIFEROL
  9. ETOPOSIDE. [Suspect]
     Active Substance: ETOPOSIDE
     Indication: SMALL CELL LUNG CANCER
     Route: 042
  10. ATORVASTATIN [Concomitant]
     Active Substance: ATORVASTATIN
  11. CALCIUM [Concomitant]
     Active Substance: CALCIUM

REACTIONS (10)
  - Pyrexia [Fatal]
  - Atrial fibrillation [Fatal]
  - Diarrhoea [Fatal]
  - Metabolic acidosis [Fatal]
  - Sepsis [Fatal]
  - Neutropenia [Fatal]
  - Acute myocardial infarction [Fatal]
  - Abdominal pain [Fatal]
  - Vomiting [Fatal]
  - Hypokalaemia [Fatal]
